FAERS Safety Report 10442116 (Version 2)
Quarter: 2015Q3

REPORT INFORMATION
  Report Type: Spontaneous
  Country: US (occurrence: None)
  Receive Date: 20140815
  Receipt Date: 20150629
  Transmission Date: 20151125
  Serious: Yes (Other)
  Sender: FDA-Public Use
  Company Number: A-US2014-97071

PATIENT
  Age: 81 Year
  Sex: Female

DRUGS (3)
  1. ATENOLOL. [Concomitant]
     Active Substance: ATENOLOL
  2. RIOCIGUAT (RIOCIGUAT) [Suspect]
     Active Substance: RIOCIGUAT
     Indication: COR PULMONALE CHRONIC
  3. OPSUMIT [Suspect]
     Active Substance: MACITENTAN
     Indication: COR PULMONALE CHRONIC
     Route: 048
     Dates: start: 20140228

REACTIONS (6)
  - Hypotension [None]
  - Presyncope [None]
  - Fluid retention [None]
  - Weight increased [None]
  - Abdominal distension [None]
  - Dizziness [None]
